FAERS Safety Report 13356351 (Version 1)
Quarter: 2017Q1

REPORT INFORMATION
  Report Type: Spontaneous
  Country: DE (occurrence: DE)
  Receive Date: 20170321
  Receipt Date: 20170321
  Transmission Date: 20170429
  Serious: Yes (Life-Threatening, Other)
  Sender: FDA-Public Use
  Company Number: DE-GLAXOSMITHKLINE-DE2017GSK038969

PATIENT
  Age: 62 Year
  Sex: Male

DRUGS (1)
  1. VOLTAREN [Suspect]
     Active Substance: DICLOFENAC SODIUM
     Indication: PRODUCT USED FOR UNKNOWN INDICATION
     Route: 065

REACTIONS (7)
  - Gastric ulcer [Unknown]
  - Reticulocyte count abnormal [Unknown]
  - Melaena [Unknown]
  - Haematocrit decreased [Unknown]
  - Intestinal haemorrhage [Unknown]
  - Anaemia [Unknown]
  - Gastric ulcer haemorrhage [Unknown]
